FAERS Safety Report 11033142 (Version 3)
Quarter: 2015Q2

REPORT INFORMATION
  Report Type: Spontaneous
  Country: FR (occurrence: FR)
  Receive Date: 20150415
  Receipt Date: 20150608
  Transmission Date: 20150821
  Serious: Yes (Hospitalization, Other)
  Sender: FDA-Public Use
  Company Number: PHHY2015FR043562

PATIENT
  Age: 88 Year
  Sex: Male

DRUGS (4)
  1. STALEVO [Suspect]
     Active Substance: CARBIDOPA\ENTACAPONE\LEVODOPA
     Dosage: 3 DF, QD (ENTAC 200 MG, LEVO 100 MG, CARB 25 MG)
     Route: 048
     Dates: start: 20150327, end: 20150327
  2. XARELTO [Concomitant]
     Active Substance: RIVAROXABAN
     Indication: PRODUCT USED FOR UNKNOWN INDICATION
     Dosage: 1 DF, QD (DAILY)
     Route: 048
  3. STALEVO [Suspect]
     Active Substance: CARBIDOPA\ENTACAPONE\LEVODOPA
     Dosage: 2 DF, QD (ENTAC 200 MG, LEVO 100 MG, CARB 25 MG)
     Route: 048
  4. STALEVO [Suspect]
     Active Substance: CARBIDOPA\ENTACAPONE\LEVODOPA
     Indication: PARKINSON^S DISEASE
     Dosage: 1 DF, QD (ENTAC 200 MG, LEVO 100 MG, CARB 25 MG)
     Route: 048
     Dates: start: 20150319

REACTIONS (7)
  - Dyspepsia [Unknown]
  - Diarrhoea [Unknown]
  - Bronchopneumonia [Unknown]
  - Musculoskeletal stiffness [Unknown]
  - Aphasia [Unknown]
  - Hallucination [Unknown]
  - Aphagia [Unknown]

NARRATIVE: CASE EVENT DATE: 20150327
